FAERS Safety Report 9931220 (Version 2)
Quarter: 2014Q2

REPORT INFORMATION
  Report Type: Report from Study
  Country: FI (occurrence: FI)
  Receive Date: 20140228
  Receipt Date: 20140405
  Transmission Date: 20141212
  Serious: Yes (Death, Other)
  Sender: FDA-Public Use
  Company Number: FI-ROCHE-1357116

PATIENT
  Sex: 0

DRUGS (1)
  1. ALTEPLASE [Suspect]
     Indication: PERIPHERAL ISCHAEMIA
     Dosage: INITIAL 4 MG BOLUS, FOLLOWED BY CONTINUOUS 0.5 MG/H INFUSION LASTING FOR A MAXIMUM OF 48 H
     Route: 013

REACTIONS (2)
  - Embolism [Fatal]
  - Treatment failure [Unknown]
